FAERS Safety Report 7460624-4 (Version None)
Quarter: 2011Q2

REPORT INFORMATION
  Report Type: 
  Country: None (occurrence: None)
  Receive Date: 20110505
  Receipt Date: 20110502
  Transmission Date: 20111010
  Serious: Yes (Other)
  Sender: FDA-Public Use
  Company Number: US-PFIZER INC-2011094301

PATIENT
  Sex: Male
  Weight: 16 kg

DRUGS (1)
  1. PHOSPHOLINE IODIDE [Suspect]
     Indication: STRABISMUS
     Dosage: UNK
     Route: 047
     Dates: start: 20110430

REACTIONS (1)
  - PHARYNGITIS STREPTOCOCCAL [None]
